FAERS Safety Report 22760050 (Version 2)
Quarter: 2024Q1

REPORT INFORMATION
  Report Type: Spontaneous
  Country: US (occurrence: US)
  Receive Date: 20230728
  Receipt Date: 20240301
  Transmission Date: 20240409
  Serious: No
  Sender: FDA-Public Use
  Company Number: US-LUPIN PHARMACEUTICALS INC.-2023-06022

PATIENT

DRUGS (1)
  1. ALBUTEROL SULFATE [Suspect]
     Active Substance: ALBUTEROL SULFATE
     Indication: Chronic obstructive pulmonary disease
     Dosage: UNK, PRN (2 PUFFS ONCE A DAY OR AS NEEDED)
     Dates: start: 2023

REACTIONS (3)
  - Wrong technique in product usage process [Unknown]
  - Product preparation error [Unknown]
  - No adverse event [Unknown]
